FAERS Safety Report 9375737 (Version 2)
Quarter: 2013Q3

REPORT INFORMATION
  Report Type: Spontaneous
  Country: MX (occurrence: MX)
  Receive Date: 20130628
  Receipt Date: 20130730
  Transmission Date: 20140515
  Serious: Yes (Hospitalization)
  Sender: FDA-Public Use
  Company Number: MX-BAXTER-2013BAX020514

PATIENT
  Age: 32 Year
  Sex: Female
  Weight: 45 kg

DRUGS (4)
  1. DIANEAL SOLUCION PARA DIALISIS PERITONEAL CON DEXTROSA AL 1.5% [Suspect]
     Indication: PERITONEAL DIALYSIS
     Dosage: 2 BAGS
     Route: 033
     Dates: end: 20130526
  2. DIANEAL SOLUCION PARA DIALISIS PERITONEAL CON DEXTROSA AL 1.5% [Suspect]
     Dosage: 2 BAGS
     Route: 033
  3. DIANEAL AL 2.5% [Suspect]
     Indication: PERITONEAL DIALYSIS
     Dosage: 2 BAGS
     Route: 033
     Dates: end: 20130526
  4. DIANEAL AL 2.5% [Suspect]
     Dosage: 2 BAGS
     Route: 033

REACTIONS (4)
  - Peritoneal effluent abnormal [Recovered/Resolved]
  - Swelling [Recovered/Resolved]
  - Fluid retention [Recovered/Resolved]
  - Nausea [Recovered/Resolved]
